FAERS Safety Report 6598072-1 (Version None)
Quarter: 2010Q1

REPORT INFORMATION
  Report Type: 
  Country: None (occurrence: None)
  Receive Date: 20100216
  Receipt Date: 20100204
  Transmission Date: 20100710
  Serious: Yes (Hospitalization)
  Sender: FDA-Public Use
  Company Number: 95104

PATIENT
  Age: 28 Year
  Sex: Female

DRUGS (1)
  1. VALPROATE SODIUM INJ. [Suspect]
     Dosage: 16G

REACTIONS (12)
  - ACIDOSIS [None]
  - ALCOHOL USE [None]
  - BASE EXCESS NEGATIVE [None]
  - BLOOD BICARBONATE DECREASED [None]
  - BLOOD LACTIC ACID INCREASED [None]
  - BLOOD PH INCREASED [None]
  - BLOOD PRESSURE DIASTOLIC DECREASED [None]
  - COMA [None]
  - CONTINUOUS HAEMODIAFILTRATION [None]
  - HYPERAMMONAEMIA [None]
  - PCO2 DECREASED [None]
  - PO2 DECREASED [None]
